FAERS Safety Report 6910328-9 (Version None)
Quarter: 2010Q3

REPORT INFORMATION
  Report Type: 
  Country: None (occurrence: None)
  Receive Date: 20100806
  Receipt Date: 20100729
  Transmission Date: 20110219
  Serious: Yes (Other)
  Sender: FDA-Public Use
  Company Number: US-PFIZER INC-2003040237

PATIENT
  Sex: Male
  Weight: 100 kg

DRUGS (2)
  1. NORVASC [Suspect]
     Indication: BLOOD PRESSURE
     Dosage: 2.5 MG, 2X/DAY
     Route: 048
     Dates: start: 20030101
  2. CELEBREX [Suspect]
     Dosage: UNK

REACTIONS (7)
  - BLOOD PRESSURE INCREASED [None]
  - DIARRHOEA [None]
  - ERYTHEMA [None]
  - EXTRASYSTOLES [None]
  - HEART RATE DECREASED [None]
  - PROSTATIC DISORDER [None]
  - RENAL IMPAIRMENT [None]
